FAERS Safety Report 16982132 (Version 1)
Quarter: 2019Q4

REPORT INFORMATION
  Report Type: Spontaneous
  Country: US (occurrence: US)
  Receive Date: 20191101
  Receipt Date: 20191101
  Transmission Date: 20200122
  Serious: No
  Sender: FDA-Public Use
  Company Number: US-ASTRAZENECA-2019SF42318

PATIENT
  Age: 57 Year
  Sex: Female
  Weight: 63.5 kg

DRUGS (3)
  1. NEXIUM [Suspect]
     Active Substance: ESOMEPRAZOLE MAGNESIUM
     Indication: DYSPEPSIA
     Route: 048
  2. CENTRUM MULTIGUMMIES WOMEN 50+ [Suspect]
     Active Substance: MINERALS\VITAMINS
     Indication: ROUTINE HEALTH MAINTENANCE
     Route: 048
  3. CENTRUM MULTIGUMMIES WOMEN 50+ [Suspect]
     Active Substance: MINERALS\VITAMINS
     Indication: ENERGY INCREASED
     Route: 048

REACTIONS (2)
  - Dysphagia [Unknown]
  - Product dose omission [Unknown]
